FAERS Safety Report 5664973-1 (Version None)
Quarter: 2008Q1

REPORT INFORMATION
  Report Type: 
  Country: None (occurrence: None)
  Receive Date: 20080314
  Receipt Date: 20080313
  Transmission Date: 20080703
  Serious: Yes (Life-Threatening, Hospitalization)
  Sender: FDA-Public Use
  Company Number: GB-BRISTOL-MYERS SQUIBB COMPANY-13715164

PATIENT
  Age: 2 Year
  Sex: Male

DRUGS (9)
  1. DASATINIB [Suspect]
     Indication: LEUKAEMIA
     Route: 048
     Dates: start: 20070313, end: 20070423
  2. AMBISOME [Concomitant]
     Dates: start: 20070331
  3. MEROPENEM [Concomitant]
     Dates: start: 20070316
  4. TEICOPLANIN [Concomitant]
     Dates: start: 20070325
  5. PARACETAMOL [Concomitant]
     Dates: start: 20070405
  6. DIHYDROCODEINE [Concomitant]
     Dates: start: 20070324
  7. CHLORPHENIRAMINE MALEATE [Concomitant]
     Dates: start: 20070301
  8. CO-TRIMOXAZOLE [Concomitant]
     Dates: start: 20070314
  9. ONDANSETRON [Concomitant]
     Dates: start: 20070301

REACTIONS (6)
  - ABDOMINAL PAIN [None]
  - FEBRILE NEUTROPENIA [None]
  - HYPOCALCAEMIA [None]
  - HYPOMAGNESAEMIA [None]
  - MALIGNANT NEOPLASM PROGRESSION [None]
  - MUSCULOSKELETAL PAIN [None]
